FAERS Safety Report 6162853-9 (Version None)
Quarter: 2009Q2

REPORT INFORMATION
  Report Type: 
  Country: None (occurrence: None)
  Receive Date: 20090421
  Receipt Date: 20081107
  Transmission Date: 20091009
  Serious: No
  Sender: FDA-Public Use
  Company Number: US-ASTRAZENECA-2008UW24984

PATIENT
  Age: 63 Year
  Sex: Female

DRUGS (3)
  1. METOPROLOL SUCCINATE [Suspect]
     Dosage: 50 MG CUT IN HALF
     Route: 048
  2. SYNTHROID [Concomitant]
  3. NAPROXEN [Concomitant]

REACTIONS (2)
  - CARDIAC FLUTTER [None]
  - PALPITATIONS [None]
